FAERS Safety Report 5327240-1 (Version None)
Quarter: 2007Q2

REPORT INFORMATION
  Report Type: 
  Country: None (occurrence: None)
  Receive Date: 20070517
  Receipt Date: 20070510
  Transmission Date: 20071010
  Serious: Yes (Hospitalization)
  Sender: FDA-Public Use
  Company Number: FR-AVENTIS-200711631FR

PATIENT
  Age: 54 Year
  Sex: Male

DRUGS (7)
  1. LOVENOX [Suspect]
     Route: 058
     Dates: end: 20070316
  2. NORVIR [Concomitant]
     Indication: HIV INFECTION
  3. REYATAZ [Concomitant]
     Indication: HIV INFECTION
  4. TRUVADA [Concomitant]
     Indication: HIV INFECTION
  5. NEURONTIN [Concomitant]
     Dates: start: 20070308
  6. BACTRIM [Concomitant]
  7. NEUPOGEN [Concomitant]
     Dates: start: 20070318

REACTIONS (3)
  - ANAEMIA [None]
  - LEUKOPENIA [None]
  - THROMBOCYTOPENIA [None]
